FAERS Safety Report 8893295 (Version 2)
Quarter: 2013Q1

REPORT INFORMATION
  Report Type: Spontaneous
  Country: US (occurrence: None)
  Receive Date: 20121031
  Receipt Date: 20121105
  Transmission Date: 20140127
  Serious: Yes (Hospitalization)
  Sender: FDA-Public Use
  Company Number: 2012-1165

PATIENT
  Age: 76 Year
  Sex: Male

DRUGS (5)
  1. KYPROLIS [Suspect]
     Indication: PLASMA CELL MYELOMA
     Dosage: (2 IN 1WK),INTRAVENOUS
     Route: 042
     Dates: start: 20120910
  2. TOPROL [Concomitant]
  3. CARAFATE [Concomitant]
  4. POTASSIUM [Concomitant]
  5. PROTONIX [Concomitant]

REACTIONS (7)
  - Gastric haemorrhage [None]
  - Haemoglobin decreased [None]
  - Platelet count decreased [None]
  - Asthenia [None]
  - Dyspnoea [None]
  - Intra-abdominal haemorrhage [None]
  - Hiatus hernia [None]
